FAERS Safety Report 8803091 (Version 2)
Quarter: 2015Q1

REPORT INFORMATION
  Report Type: Report from Study
  Country: US (occurrence: US)
  Receive Date: 20120924
  Receipt Date: 20150310
  Transmission Date: 20150721
  Serious: Yes (Death, Hospitalization, Other)
  Sender: FDA-Public Use
  Company Number: US-ROCHE-1093324

PATIENT
  Age: 64 Year
  Sex: Female
  Weight: 79 kg

DRUGS (27)
  1. DECADRON [Concomitant]
     Active Substance: DEXAMETHASONE
     Route: 042
  2. TAXOTERE [Concomitant]
     Active Substance: DOCETAXEL
     Route: 042
  3. ZANTAC [Concomitant]
     Active Substance: RANITIDINE HYDROCHLORIDE
  4. COMPAZINE [Concomitant]
     Active Substance: PROCHLORPERAZINE MALEATE
     Route: 065
  5. DURAGESIC [Concomitant]
     Active Substance: FENTANYL
     Route: 065
  6. NEXIUM [Concomitant]
     Active Substance: ESOMEPRAZOLE MAGNESIUM
     Route: 048
  7. DAPTOMYCIN. [Concomitant]
     Active Substance: DAPTOMYCIN
     Route: 042
  8. AMBIEN [Concomitant]
     Active Substance: ZOLPIDEM TARTRATE
     Route: 065
  9. KEFLEX [Concomitant]
     Active Substance: CEPHALEXIN
     Route: 065
  10. LEVAQUIN [Concomitant]
     Active Substance: LEVOFLOXACIN
  11. CARAFATE [Concomitant]
     Active Substance: SUCRALFATE
     Route: 065
  12. OXALIPLATIN. [Suspect]
     Active Substance: OXALIPLATIN
     Indication: PRODUCT USED FOR UNKNOWN INDICATION
     Route: 042
  13. CALAN SR [Concomitant]
     Active Substance: VERAPAMIL HYDROCHLORIDE
     Route: 065
  14. ROCEPHIN [Concomitant]
     Active Substance: CEFTRIAXONE SODIUM
     Route: 042
  15. GEMZAR [Concomitant]
     Active Substance: GEMCITABINE HYDROCHLORIDE
     Route: 042
  16. SYNTHROID [Concomitant]
     Active Substance: LEVOTHYROXINE SODIUM
     Route: 048
  17. ARANESP [Concomitant]
     Active Substance: DARBEPOETIN ALFA
     Dosage: 200 MCQ
     Route: 042
  18. NYSTATIN. [Concomitant]
     Active Substance: NYSTATIN
     Dosage: 100000 U/ML
     Route: 065
  19. XELODA [Suspect]
     Active Substance: CAPECITABINE
     Indication: PRODUCT USED FOR UNKNOWN INDICATION
     Route: 065
  20. VICODIN [Concomitant]
     Active Substance: ACETAMINOPHEN\HYDROCODONE BITARTRATE
     Dosage: 5-500
     Route: 065
  21. ALOXI [Concomitant]
     Active Substance: PALONOSETRON HYDROCHLORIDE
     Route: 065
  22. LASIX [Concomitant]
     Active Substance: FUROSEMIDE
     Route: 065
  23. AVASTIN [Suspect]
     Active Substance: BEVACIZUMAB
     Indication: PANCREATIC CARCINOMA
     Route: 042
  24. NEUPOGEN [Concomitant]
     Active Substance: FILGRASTIM
     Route: 065
  25. NEULASTA [Concomitant]
     Active Substance: PEGFILGRASTIM
     Route: 065
  26. ESKALITH CR [Concomitant]
     Active Substance: LITHIUM CARBONATE
     Route: 048
  27. TEQUIN [Concomitant]
     Active Substance: GATIFLOXACIN
     Route: 065

REACTIONS (46)
  - Neutropenia [Unknown]
  - Pain [Unknown]
  - Dyspnoea exertional [Unknown]
  - Metastases to peritoneum [Unknown]
  - Constipation [Unknown]
  - Diarrhoea [Unknown]
  - Blood pressure increased [Unknown]
  - Feeling jittery [Unknown]
  - Weight decreased [Unknown]
  - Onycholysis [Unknown]
  - Nocturia [Unknown]
  - Dehydration [Unknown]
  - Death [Fatal]
  - Anaemia [Unknown]
  - Mucosal dryness [Unknown]
  - Tongue coated [Unknown]
  - Wheezing [Unknown]
  - Malignant peritoneal neoplasm [Unknown]
  - Tinea infection [Unknown]
  - Melaena [Unknown]
  - Hypophagia [Unknown]
  - Abdominal discomfort [Unknown]
  - Mucosal inflammation [Unknown]
  - Contusion [Unknown]
  - Muscular weakness [Unknown]
  - Spinal pain [Unknown]
  - Ulcer [Unknown]
  - Catheter site pain [Unknown]
  - Insomnia [Unknown]
  - Retching [Unknown]
  - Eye disorder [Unknown]
  - Vomiting [Unknown]
  - Dyspepsia [Unknown]
  - Catheter site infection [Unknown]
  - Asthenia [Unknown]
  - Fatigue [Unknown]
  - Diplopia [Unknown]
  - Cough [Unknown]
  - Decreased appetite [Unknown]
  - Hypoaesthesia [Unknown]
  - Vision blurred [Unknown]
  - Chest pain [Unknown]
  - Nausea [Unknown]
  - Catheter site erythema [Unknown]
  - Dizziness [Unknown]
  - Paraesthesia [Unknown]

NARRATIVE: CASE EVENT DATE: 20050914
